FAERS Safety Report 8071733-3 (Version None)
Quarter: 2012Q1

REPORT INFORMATION
  Report Type: 
  Country: None (occurrence: None)
  Receive Date: 20120125
  Receipt Date: 20120117
  Transmission Date: 20120608
  Serious: Yes (Hospitalization, Disabling)
  Sender: FDA-Public Use
  Company Number: US-MERCK-1107USA03286

PATIENT
  Age: 53 Year
  Sex: Female
  Weight: 55 kg

DRUGS (8)
  1. CALCIUM (UNSPECIFIED) [Concomitant]
     Route: 048
     Dates: start: 19960101
  2. ASCORBIC ACID [Concomitant]
     Route: 048
  3. FOSAMAX [Suspect]
     Indication: OSTEOPOROSIS
     Route: 048
     Dates: start: 19960101, end: 20020101
  4. FOSAMAX [Suspect]
     Route: 048
     Dates: start: 20051101, end: 20060201
  5. FOSAMAX [Suspect]
     Route: 048
     Dates: start: 20020301, end: 20031101
  6. CALCIUM (UNSPECIFIED) AND VITAMIN D (UNSPECIFIED) [Concomitant]
     Route: 048
     Dates: start: 19960101
  7. FOSAMAX PLUS D [Suspect]
     Route: 048
     Dates: start: 20060410, end: 20070601
  8. VITAMINS (UNSPECIFIED) [Concomitant]
     Route: 048

REACTIONS (17)
  - BONE PAIN [None]
  - GASTROOESOPHAGEAL REFLUX DISEASE [None]
  - TOOTH DISORDER [None]
  - LOW TURNOVER OSTEOPATHY [None]
  - BACK PAIN [None]
  - OSTEOARTHRITIS [None]
  - FEMUR FRACTURE [None]
  - RIB FRACTURE [None]
  - BURSITIS [None]
  - ADVERSE EVENT [None]
  - HYPERTENSION [None]
  - VITAMIN D DEFICIENCY [None]
  - MITRAL VALVE INCOMPETENCE [None]
  - OSTEOPOROSIS [None]
  - VITAMIN C DEFICIENCY [None]
  - SPINAL COMPRESSION FRACTURE [None]
  - OSTEOGENESIS IMPERFECTA [None]
